FAERS Safety Report 24739289 (Version 1)
Quarter: 2024Q4

REPORT INFORMATION
  Report Type: Spontaneous
  Country: US (occurrence: US)
  Receive Date: 20241216
  Receipt Date: 20241216
  Transmission Date: 20250115
  Serious: No
  Sender: ALVOGEN
  Company Number: US-ALVOGEN-2024095137

PATIENT

DRUGS (2)
  1. FENTANYL [Suspect]
     Active Substance: FENTANYL
     Indication: Pain
     Dosage: STRENGTH: 25MCG/HR
  2. FENTANYL [Suspect]
     Active Substance: FENTANYL
     Indication: Pain
     Dosage: REFILLED ON 06-JUL-2024?4TH PATCH?STRENGTH: 25MCG/HR?EXPIRATION DATE: APR-2027
     Dates: start: 2024

REACTIONS (2)
  - Device malfunction [Unknown]
  - Device adhesion issue [Unknown]
